FAERS Safety Report 6268003-2 (Version None)
Quarter: 2009Q3

REPORT INFORMATION
  Report Type: 
  Country: None (occurrence: None)
  Receive Date: 20090713
  Receipt Date: 20090626
  Transmission Date: 20100115
  Serious: Yes (Other)
  Sender: FDA-Public Use
  Company Number: BVT-000219

PATIENT
  Sex: Female

DRUGS (1)
  1. ANAKINRA (BIOVITRUM AB.) [Suspect]
     Indication: JUVENILE ARTHRITIS
     Dosage: ()

REACTIONS (3)
  - BONE MARROW TRANSPLANT [None]
  - HISTIOCYTOSIS HAEMATOPHAGIC [None]
  - NEUTROPENIA [None]
